FAERS Safety Report 12076178 (Version 1)
Quarter: 2016Q1

REPORT INFORMATION
  Report Type: Spontaneous
  Country: KR (occurrence: KR)
  Receive Date: 20160215
  Receipt Date: 20160215
  Transmission Date: 20160526
  Serious: Yes (Disabling, Other)
  Sender: FDA-Public Use
  Company Number: KR-ROCHE-1710309

PATIENT
  Sex: Male

DRUGS (1)
  1. AVASTIN [Suspect]
     Active Substance: BEVACIZUMAB
     Indication: MACULAR DEGENERATION
     Dosage: SINGLE DOSE
     Route: 050
     Dates: start: 20110616, end: 20110616

REACTIONS (4)
  - Suspected transmission of an infectious agent via product [Unknown]
  - Eye infection bacterial [Unknown]
  - Off label use [Unknown]
  - Blindness unilateral [Not Recovered/Not Resolved]
